FAERS Safety Report 7730225-9 (Version None)
Quarter: 2011Q3

REPORT INFORMATION
  Report Type: 
  Country: None (occurrence: None)
  Receive Date: 20110906
  Receipt Date: 20110901
  Transmission Date: 20111222
  Serious: Yes (Life-Threatening, Hospitalization)
  Sender: FDA-Public Use
  Company Number: PHHO2011DE07255

PATIENT
  Sex: Male
  Weight: 107 kg

DRUGS (2)
  1. EVEROLIMUS [Suspect]
     Indication: LIVER TRANSPLANT
     Dosage: 15-0-0 MG
     Route: 048
     Dates: start: 20110324
  2. MYFORTIC [Concomitant]
     Indication: LIVER TRANSPLANT
     Dosage: 1080 MG, BID

REACTIONS (6)
  - SYSTEMIC CANDIDA [None]
  - OEDEMA PERIPHERAL [None]
  - RENAL FAILURE [None]
  - ENDOCARDITIS BACTERIAL [None]
  - CARDIOMYOPATHY [None]
  - HEPATIC HAEMATOMA [None]
